FAERS Safety Report 10481273 (Version 1)
Quarter: 2014Q3

REPORT INFORMATION
  Report Type: Spontaneous
  Country: US (occurrence: US)
  Receive Date: 20140929
  Receipt Date: 20140929
  Transmission Date: 20150326
  Serious: Yes (Hospitalization)
  Sender: FDA-Public Use
  Company Number: US-JNJFOC-20140915827

PATIENT
  Age: 50 Year
  Sex: Male
  Weight: 99.79 kg

DRUGS (2)
  1. DURAGESIC [Suspect]
     Active Substance: FENTANYL
     Indication: PRODUCT USED FOR UNKNOWN INDICATION
     Route: 062
     Dates: start: 20140821
  2. DURAGESIC [Suspect]
     Active Substance: FENTANYL
     Indication: PRODUCT USED FOR UNKNOWN INDICATION
     Route: 062

REACTIONS (9)
  - Nausea [Unknown]
  - Dehydration [Unknown]
  - Chest discomfort [Not Recovered/Not Resolved]
  - Drug dose omission [Unknown]
  - Tooth injury [Unknown]
  - Inappropriate schedule of drug administration [Unknown]
  - Hypoaesthesia oral [Not Recovered/Not Resolved]
  - Diarrhoea [Unknown]
  - Withdrawal syndrome [Unknown]

NARRATIVE: CASE EVENT DATE: 2014
